FAERS Safety Report 19050732 (Version 1)
Quarter: 2021Q1

REPORT INFORMATION
  Report Type: Spontaneous
  Country: JP (occurrence: JP)
  Receive Date: 20210323
  Receipt Date: 20210323
  Transmission Date: 20210420
  Serious: Yes (Hospitalization)
  Sender: FDA-Public Use
  Company Number: JP-JNJFOC-20210333772

PATIENT
  Age: 71 Year
  Sex: Male

DRUGS (2)
  1. RIVAROXABAN [Suspect]
     Active Substance: RIVAROXABAN
     Dosage: XARELTO 15 MG?15 MG
     Route: 048
     Dates: start: 20210219
  2. RIVAROXABAN [Suspect]
     Active Substance: RIVAROXABAN
     Indication: PRODUCT USED FOR UNKNOWN INDICATION
     Dosage: 10 MG?XARELTO 10 MG
     Route: 048
     Dates: end: 20210215

REACTIONS (1)
  - Hemiplegia [Not Recovered/Not Resolved]

NARRATIVE: CASE EVENT DATE: 20210220
